FAERS Safety Report 5750491-9 (Version None)
Quarter: 2008Q2

REPORT INFORMATION
  Report Type: 
  Country: None (occurrence: None)
  Receive Date: 20080528
  Receipt Date: 20070827
  Transmission Date: 20081010
  Serious: No
  Sender: FDA-Public Use
  Company Number: US-KINGPHARMUSA00001-K200701096

PATIENT

DRUGS (1)
  1. AVINZA [Suspect]
     Indication: PAIN
     Dosage: 120 MG, QD
     Route: 048
     Dates: start: 20030101, end: 20070817

REACTIONS (3)
  - HYPERHIDROSIS [None]
  - INSOMNIA [None]
  - NAUSEA [None]
